FAERS Safety Report 14876298 (Version 1)
Quarter: 2018Q2

REPORT INFORMATION
  Report Type: Spontaneous
  Country: ZA (occurrence: ZA)
  Receive Date: 20180510
  Receipt Date: 20180510
  Transmission Date: 20180711
  Serious: Yes (Hospitalization, Other)
  Sender: FDA-Public Use
  Company Number: ZA-PFIZER INC-2018187920

PATIENT
  Age: 72 Year
  Sex: Male

DRUGS (8)
  1. CINNARIZINE [Suspect]
     Active Substance: CINNARIZINE
     Dosage: 25 MG, UNK
  2. WARFARIN [Suspect]
     Active Substance: WARFARIN
     Dosage: 5 MG, UNK
  3. BE-TABS PREDNISONE [Suspect]
     Active Substance: PREDNISONE
     Dosage: 5 MG, UNK
  4. MACRODANTIN [Suspect]
     Active Substance: NITROFURANTOIN
     Dosage: 100 MG, UNK
  5. CITALOPRAM [Suspect]
     Active Substance: CITALOPRAM HYDROBROMIDE
     Dosage: 20 MG, UNK
  6. ASPAVOR [Suspect]
     Active Substance: ATORVASTATIN
     Dosage: 20 MG, UNK
  7. EPANUTIN [Suspect]
     Active Substance: PHENYTOIN SODIUM
     Dosage: 100 MG, UNK
  8. EPIKEPP [Suspect]
     Active Substance: LEVETIRACETAM
     Dosage: 250 MG, UNK

REACTIONS (1)
  - Seizure [Unknown]
